FAERS Safety Report 5298471-4 (Version None)
Quarter: 2007Q2

REPORT INFORMATION
  Report Type: 
  Country: None (occurrence: None)
  Receive Date: 20070409
  Receipt Date: 20070326
  Transmission Date: 20071010
  Serious: Yes (Death)
  Sender: FDA-Public Use
  Company Number: S06-USA-04284-01

PATIENT
  Age: 68 Year
  Sex: Male
  Weight: 73.9363 kg

DRUGS (4)
  1. LEXAPRO [Suspect]
     Indication: NERVOUSNESS
     Dosage: 10 MG QD PO
     Route: 048
     Dates: start: 20050401, end: 20050701
  2. ZESTRIL [Concomitant]
  3. ATIVAN [Concomitant]
  4. NEXIUM [Concomitant]

REACTIONS (14)
  - AGITATION [None]
  - ANXIETY [None]
  - CHEST PAIN [None]
  - COMPLETED SUICIDE [None]
  - DEPRESSED MOOD [None]
  - DYSPEPSIA [None]
  - DYSPNOEA [None]
  - FATIGUE [None]
  - FEELING COLD [None]
  - FEELING HOT [None]
  - GUN SHOT WOUND [None]
  - HEAD INJURY [None]
  - HOSTILITY [None]
  - TREMOR [None]
